FAERS Safety Report 17419027 (Version 2)
Quarter: 2020Q1

REPORT INFORMATION
  Report Type: Report from Study
  Country: US (occurrence: US)
  Receive Date: 20200214
  Receipt Date: 20200221
  Transmission Date: 20200409
  Serious: No
  Sender: FDA-Public Use
  Company Number: US-AMGEN-USASP2020024172

PATIENT
  Age: 75 Year
  Sex: Male

DRUGS (1)
  1. ENBREL [Suspect]
     Active Substance: ETANERCEPT
     Indication: ARTHROPATHY
     Dosage: 1 DOSAGE FORM, QWK
     Route: 065
     Dates: start: 202001

REACTIONS (7)
  - Injection site warmth [Unknown]
  - Injection site erythema [Unknown]
  - Injection site mass [Not Recovered/Not Resolved]
  - Off label use [Unknown]
  - Pyrexia [Unknown]
  - Injection site recall reaction [Unknown]
  - Injection site pain [Unknown]

NARRATIVE: CASE EVENT DATE: 2020
